FAERS Safety Report 6545340-5 (Version None)
Quarter: 2010Q1

REPORT INFORMATION
  Report Type: 
  Country: None (occurrence: None)
  Receive Date: 20100121
  Receipt Date: 20100113
  Transmission Date: 20100710
  Serious: Yes (Hospitalization, Disabling)
  Sender: FDA-Public Use
  Company Number: US-AMGEN-KDC385499

PATIENT
  Age: 58 Year
  Sex: Female
  Weight: 29 kg

DRUGS (3)
  1. PANITUMUMAB [Suspect]
     Indication: PANCREATIC CARCINOMA
     Dates: start: 20091104, end: 20091207
  2. 5-FLUOROURACIL [Suspect]
     Dates: start: 20091104, end: 20091216
  3. RADIATION THERAPY [Suspect]
     Dates: start: 20091104, end: 20091216

REACTIONS (6)
  - BLOOD ALBUMIN DECREASED [None]
  - CACHEXIA [None]
  - DECREASED APPETITE [None]
  - FAILURE TO THRIVE [None]
  - NAUSEA [None]
  - WEIGHT DECREASED [None]
